FAERS Safety Report 10662726 (Version 2)
Quarter: 2018Q4

REPORT INFORMATION
  Report Type: Spontaneous
  Country: FR (occurrence: FR)
  Receive Date: 20141218
  Receipt Date: 20181113
  Transmission Date: 20190204
  Serious: Yes (Other)
  Sender: FDA-Public Use
  Company Number: FR-JNJFOC-20141210105

PATIENT
  Age: 48 Year
  Sex: Female

DRUGS (10)
  1. DELURSAN [Concomitant]
     Active Substance: URSODIOL
     Dosage: ONE TABLET IN THE MORNING AND ONE TABLET??ON THE EVENING
     Route: 065
     Dates: start: 201409
  2. PRAZEPAM [Concomitant]
     Active Substance: PRAZEPAM
     Route: 065
  3. BRICANYL [Concomitant]
     Active Substance: TERBUTALINE SULFATE
     Dosage: IF NEEDED
     Route: 065
  4. ZOLPIDEM [Concomitant]
     Active Substance: ZOLPIDEM\ZOLPIDEM TARTRATE
     Dosage: IF NEEDED
     Route: 065
  5. SERETIDE [Concomitant]
     Active Substance: FLUTICASONE PROPIONATE\SALMETEROL XINAFOATE
     Dosage: IF NEEDED
     Route: 065
  6. LEVOTHYROX [Concomitant]
     Active Substance: LEVOTHYROXINE
     Dosage: ONE TABLET IN THE MORNING AND ONE TABLET??ON THE EVENING
     Route: 065
     Dates: start: 201409
  7. TRANSULOSE [Concomitant]
     Active Substance: LACTULOSE\MINERAL OIL\PARAFFIN
     Dosage: IF NEEDED
     Route: 065
  8. VENLAFAXINE [Concomitant]
     Active Substance: VENLAFAXINE HYDROCHLORIDE
     Dosage: ONE TABLET IN THE MORNING AND ONE TABLET??ON THE EVENING
     Route: 065
     Dates: start: 201409
  9. HYDROCHLOROTHIAZIDE, VALSARTAN [Concomitant]
     Active Substance: HYDROCHLOROTHIAZIDE\VALSARTAN
     Dosage: IF NEEDED
     Route: 065
  10. SIMPONI [Suspect]
     Active Substance: GOLIMUMAB
     Indication: ANKYLOSING SPONDYLITIS
     Route: 058
     Dates: start: 20130329

REACTIONS (3)
  - Anxiety [Not Recovered/Not Resolved]
  - Suicide attempt [Not Recovered/Not Resolved]
  - Suicidal ideation [Not Recovered/Not Resolved]

NARRATIVE: CASE EVENT DATE: 201411
